FAERS Safety Report 20824750 (Version 6)
Quarter: 2023Q2

REPORT INFORMATION
  Report Type: Spontaneous
  Country: JP (occurrence: JP)
  Receive Date: 20220513
  Receipt Date: 20230407
  Transmission Date: 20230721
  Serious: Yes (Hospitalization)
  Sender: FDA-Public Use
  Company Number: JP-MTPC-MTPC2022-0012158

PATIENT
  Age: 3 Decade
  Sex: Male

DRUGS (14)
  1. REMICADE [Suspect]
     Active Substance: INFLIXIMAB
     Indication: Crohn^s disease
     Dosage: 260 MILLIGRAM, QD
     Route: 041
     Dates: start: 20211203
  2. REMICADE [Suspect]
     Active Substance: INFLIXIMAB
     Dosage: 280 MILLIGRAM, QD
     Route: 041
     Dates: start: 20220114, end: 20220114
  3. REMICADE [Suspect]
     Active Substance: INFLIXIMAB
     Dosage: 280 MILLIGRAM, QD
     Route: 041
     Dates: start: 20220317, end: 20220317
  4. SULFAMETHOXAZOLE\TRIMETHOPRIM [Concomitant]
     Active Substance: SULFAMETHOXAZOLE\TRIMETHOPRIM
     Indication: Abdominal abscess
     Dosage: 2 DOSAGE FORM, BID
     Route: 048
     Dates: start: 20220308, end: 20220417
  5. FLAGYL [Concomitant]
     Active Substance: METRONIDAZOLE\METRONIDAZOLE HYDROCHLORIDE
     Indication: Abdominal abscess
     Dosage: 500 MILLIGRAM, TID
     Route: 048
     Dates: start: 20220308, end: 20220417
  6. AMINO ACIDS\DEXTROSE\ELECTROLYTES NOS\VITAMINS [Concomitant]
     Active Substance: AMINO ACIDS\DEXTROSE\ELECTROLYTES NOS\VITAMINS
     Indication: Fluid replacement
     Dosage: 500 MILLILITER, TID
     Route: 041
     Dates: start: 20220415, end: 20220419
  7. AMINO ACIDS\DEXTROSE\ELECTROLYTES NOS\VITAMINS [Concomitant]
     Active Substance: AMINO ACIDS\DEXTROSE\ELECTROLYTES NOS\VITAMINS
     Indication: Nutritional supplementation
     Dosage: 500 MILLILITER, TID
     Route: 041
     Dates: start: 20220423, end: 20220426
  8. SODIUM CHLORIDE [Concomitant]
     Active Substance: SODIUM CHLORIDE
     Indication: Fluid replacement
     Dosage: 500 MILLILITER, BID
     Route: 041
     Dates: start: 20220416, end: 20220421
  9. SODIUM CHLORIDE [Concomitant]
     Active Substance: SODIUM CHLORIDE
     Indication: Nutritional supplementation
  10. ELNEOPA NF NO.1 [Concomitant]
     Indication: Fluid replacement
     Dosage: 1500 MILLILITER, QD
     Route: 041
     Dates: start: 20220419, end: 20220421
  11. ELNEOPA NF NO.1 [Concomitant]
     Indication: Nutritional supplementation
     Dosage: 1500 MILLILITER, QD
     Route: 041
     Dates: start: 20220426, end: 20220427
  12. AMINO ACIDS\DEXTROSE\ELECTROLYTES NOS\MINERALS\VITAMINS [Concomitant]
     Active Substance: AMINO ACIDS\DEXTROSE\ELECTROLYTES NOS\MINERALS\VITAMINS
     Indication: Fluid replacement
     Dosage: 1500 MILLILITER, QD
     Route: 041
     Dates: start: 20220421, end: 20220423
  13. AMINO ACIDS\DEXTROSE\ELECTROLYTES NOS\MINERALS\VITAMINS [Concomitant]
     Active Substance: AMINO ACIDS\DEXTROSE\ELECTROLYTES NOS\MINERALS\VITAMINS
     Indication: Nutritional supplementation
     Dosage: 1500 MILLILITER, QD
     Route: 041
     Dates: start: 20220427, end: 20220514
  14. USTEKINUMAB [Concomitant]
     Active Substance: USTEKINUMAB
     Dosage: UNK, Q8WEEKS
     Route: 065

REACTIONS (1)
  - Takayasu^s arteritis [Recovering/Resolving]

NARRATIVE: CASE EVENT DATE: 20220401
